FAERS Safety Report 5874521-9 (Version None)
Quarter: 2008Q3

REPORT INFORMATION
  Report Type: 
  Country: None (occurrence: None)
  Receive Date: 20080909
  Receipt Date: 20080829
  Transmission Date: 20090109
  Serious: Yes (Other)
  Sender: FDA-Public Use
  Company Number: PHHY2008JP16941

PATIENT
  Sex: Female
  Weight: 54 kg

DRUGS (5)
  1. EXJADE [Suspect]
     Indication: IRON OVERLOAD
     Dosage: 500 MG DAILY
     Route: 048
     Dates: start: 20080722, end: 20080730
  2. EXJADE [Suspect]
     Dosage: 250 MG/DAY
     Route: 048
     Dates: start: 20080825
  3. CRAVIT [Suspect]
     Indication: PYREXIA
     Dosage: 400 MG/DAY
     Route: 048
     Dates: start: 20080722, end: 20080730
  4. DIFLUCAN [Concomitant]
     Indication: INFECTION PROPHYLAXIS
     Dosage: 200 MG, UNK
     Route: 048
     Dates: start: 20071201
  5. COTRIM [Concomitant]
     Indication: INFECTION PROPHYLAXIS
     Dosage: 1 DF, UNK
     Route: 048
     Dates: start: 20071201

REACTIONS (3)
  - ERYTHEMA [None]
  - RASH [None]
  - TOXIC SKIN ERUPTION [None]
